FAERS Safety Report 11993041 (Version 1)
Quarter: 2016Q1

REPORT INFORMATION
  Report Type: Spontaneous
  Country: US (occurrence: US)
  Receive Date: 20160203
  Receipt Date: 20160203
  Transmission Date: 20160526
  Serious: No
  Sender: FDA-Public Use
  Company Number: US-ASTRAZENECA-2016SE10463

PATIENT
  Age: 82 Year
  Sex: Female
  Weight: 63.5 kg

DRUGS (10)
  1. PRILOSEC [Suspect]
     Active Substance: OMEPRAZOLE MAGNESIUM
     Indication: DYSPEPSIA
     Route: 048
  2. LORAZEPAM. [Concomitant]
     Active Substance: LORAZEPAM
     Route: 048
  3. LORAZEPAM. [Concomitant]
     Active Substance: LORAZEPAM
     Route: 048
  4. LEVOTHYROXINE. [Concomitant]
     Active Substance: LEVOTHYROXINE
     Indication: THYROID DISORDER
     Route: 048
     Dates: start: 20151224
  5. NEXIUM [Suspect]
     Active Substance: ESOMEPRAZOLE MAGNESIUM
     Indication: OESOPHAGITIS
     Route: 048
  6. NEXIUM [Suspect]
     Active Substance: ESOMEPRAZOLE MAGNESIUM
     Indication: OESOPHAGITIS
     Route: 048
  7. LORAZEPAM. [Concomitant]
     Active Substance: LORAZEPAM
     Route: 048
  8. LEVOTHYROXINE. [Concomitant]
     Active Substance: LEVOTHYROXINE
     Indication: THYROID DISORDER
     Dates: start: 2006
  9. NEXIUM [Suspect]
     Active Substance: ESOMEPRAZOLE MAGNESIUM
     Indication: DYSPEPSIA
     Route: 048
  10. NEXIUM [Suspect]
     Active Substance: ESOMEPRAZOLE MAGNESIUM
     Indication: DYSPEPSIA
     Route: 048

REACTIONS (7)
  - Thyroid hormones decreased [Unknown]
  - Anxiety [Unknown]
  - Abdominal discomfort [Unknown]
  - Hypothyroidism [Unknown]
  - Hiatus hernia [Unknown]
  - Drug ineffective [Unknown]
  - Gastric ulcer [Unknown]
